FAERS Safety Report 8921866 (Version 2)
Quarter: 2012Q4

REPORT INFORMATION
  Report Type: 
  Country: US (occurrence: US)
  Receive Date: 20121121
  Receipt Date: 20121212
  Transmission Date: 20130627
  Serious: No
  Sender: FDA-Public Use
  Company Number: US-009507513-1211USA002364

PATIENT
  Sex: Male

DRUGS (1)
  1. ZEGERID OTC CAPSULES [Suspect]
     Indication: PRODUCT USED FOR UNKNOWN INDICATION
     Dosage: UNK, Unknown
     Route: 048
     Dates: start: 201210

REACTIONS (3)
  - Abdominal discomfort [Unknown]
  - Malaise [Unknown]
  - Feeling abnormal [Unknown]
